FAERS Safety Report 13624849 (Version 1)
Quarter: 2017Q2

REPORT INFORMATION
  Report Type: Spontaneous
  Country: US (occurrence: US)
  Receive Date: 20170608
  Receipt Date: 20170608
  Transmission Date: 20170830
  Serious: No
  Sender: FDA-Public Use
  Company Number: US-LUPIN PHARMACEUTICALS INC.-2017-01945

PATIENT
  Sex: Female

DRUGS (1)
  1. IRBESARTAN TABLETS USP 75 MG [Suspect]
     Active Substance: IRBESARTAN
     Indication: HYPERTENSION
     Dosage: 75 MG, QD
     Route: 048
     Dates: start: 20170308, end: 20170412

REACTIONS (2)
  - Hypertension [Unknown]
  - Drug ineffective [Unknown]
